FAERS Safety Report 16331207 (Version 3)
Quarter: 2021Q1

REPORT INFORMATION
  Report Type: Report from Study
  Country: US (occurrence: US)
  Receive Date: 20190520
  Receipt Date: 20210205
  Transmission Date: 20210419
  Serious: Yes (Death, Other)
  Sender: FDA-Public Use
  Company Number: US-ACADIA PHARMACEUTICALS INC.-ACA-2019-012103

PATIENT
  Age: 74 Year
  Sex: Male

DRUGS (7)
  1. NUPLAZID [Suspect]
     Active Substance: PIMAVANSERIN TARTRATE
     Indication: HALLUCINATION
     Dosage: 17 MG, QD
     Route: 065
     Dates: start: 201706
  2. NUPLAZID [Suspect]
     Active Substance: PIMAVANSERIN TARTRATE
     Indication: PARKINSON^S DISEASE PSYCHOSIS
     Dosage: 51 MG, QD; (1) 34MG CAPSULE AND (1) 17MG TABLET
     Route: 065
  3. NUPLAZID [Suspect]
     Active Substance: PIMAVANSERIN TARTRATE
     Indication: HALLUCINATION
     Dosage: 34 MILLIGRAM, QD
     Route: 065
  4. NUPLAZID [Suspect]
     Active Substance: PIMAVANSERIN TARTRATE
     Indication: HALLUCINATION
     Dosage: 68 MG, QD
     Route: 065
  5. NUPLAZID [Suspect]
     Active Substance: PIMAVANSERIN TARTRATE
     Dosage: 34 MG, QD
     Route: 065
  6. NUPLAZID [Suspect]
     Active Substance: PIMAVANSERIN TARTRATE
     Indication: DELUSION
  7. NUPLAZID [Suspect]
     Active Substance: PIMAVANSERIN TARTRATE
     Dosage: 51 MG, QD [(3) 17 MG NUPLAZID ONCE A DAY]
     Route: 065

REACTIONS (11)
  - Death [Recovered/Resolved]
  - Patient uncooperative [Not Recovered/Not Resolved]
  - Prescribed overdose [Unknown]
  - Drug ineffective [Unknown]
  - Hallucination [Not Recovered/Not Resolved]
  - Somnolence [Not Recovered/Not Resolved]
  - Tremor [Not Recovered/Not Resolved]
  - Irritability [Not Recovered/Not Resolved]
  - Middle insomnia [Not Recovered/Not Resolved]
  - Off label use [Unknown]
  - Underdose [Unknown]

NARRATIVE: CASE EVENT DATE: 201706
